FAERS Safety Report 10077822 (Version 1)
Quarter: 2014Q2

REPORT INFORMATION
  Report Type: Report from Study
  Country: CL (occurrence: CL)
  Receive Date: 20140414
  Receipt Date: 20140414
  Transmission Date: 20141212
  Serious: Yes (Hospitalization)
  Sender: FDA-Public Use
  Company Number: PHHY2014CL045454

PATIENT
  Age: 29 Year
  Sex: Female

DRUGS (2)
  1. LEPONEX / CLOZARIL (CLOZAPINE) [Suspect]
     Indication: SCHIZOPHRENIA
     Dosage: 300 MG, UNK
     Dates: end: 20140409
  2. LEPONEX / CLOZARIL (CLOZAPINE) [Suspect]
     Dosage: 350 MG, UNK
     Dates: start: 20140410

REACTIONS (2)
  - Psychiatric decompensation [Not Recovered/Not Resolved]
  - Delusion [Not Recovered/Not Resolved]
